FAERS Safety Report 7068247-6 (Version None)
Quarter: 2010Q4

REPORT INFORMATION
  Report Type: 
  Country: None (occurrence: None)
  Receive Date: 20101027
  Receipt Date: 20101027
  Transmission Date: 20110411
  Serious: Yes (Other)
  Sender: FDA-Public Use
  Company Number: None

PATIENT
  Age: 14 Month
  Sex: Male
  Weight: 10.4327 kg

DRUGS (1)
  1. HYLAND'S TEETHING TABLETS HOMEOPATHIC HYLAND'S [Suspect]
     Indication: TEETHING
     Dosage: 2-3 TABLETS 4X/DAY PO
     Route: 048
     Dates: start: 20100101, end: 20100930

REACTIONS (4)
  - ABNORMAL BEHAVIOUR [None]
  - CRYING [None]
  - DYSKINESIA [None]
  - DYSSTASIA [None]
